FAERS Safety Report 21405566 (Version 3)
Quarter: 2023Q2

REPORT INFORMATION
  Report Type: Report from Study
  Country: US (occurrence: US)
  Receive Date: 20221004
  Receipt Date: 20230508
  Transmission Date: 20230722
  Serious: Yes (Hospitalization, Other)
  Sender: FDA-Public Use
  Company Number: US-ABBVIE-4133272

PATIENT
  Age: 79 Year
  Sex: Male
  Weight: 88.45 kg

DRUGS (4)
  1. HUMIRA [Suspect]
     Active Substance: ADALIMUMAB
     Indication: Psoriasis
     Route: 058
     Dates: start: 2021
  2. HUMIRA [Suspect]
     Active Substance: ADALIMUMAB
     Route: 058
  3. TORSEMIDE [Concomitant]
     Active Substance: TORSEMIDE
     Indication: Blood pressure measurement
  4. MODERNA COVID-19 VACCINE [Concomitant]
     Active Substance: ELASOMERAN
     Indication: COVID-19 immunisation
     Dosage: ONCE
     Route: 030

REACTIONS (7)
  - Hypertension [Recovered/Resolved]
  - Loss of consciousness [Unknown]
  - Blood pressure abnormal [Unknown]
  - Dementia [Unknown]
  - Blood pressure decreased [Unknown]
  - Dehydration [Unknown]
  - Chest pain [Unknown]

NARRATIVE: CASE EVENT DATE: 20230119
